FAERS Safety Report 5627154-3 (Version None)
Quarter: 2008Q1

REPORT INFORMATION
  Report Type: 
  Country: None (occurrence: None)
  Receive Date: 20080212
  Receipt Date: 20080212
  Transmission Date: 20080703
  Serious: Yes (Life-Threatening, Other)
  Sender: FDA-Public Use
  Company Number: None

PATIENT
  Age: 44 Year
  Sex: Female
  Weight: 68.0396 kg

DRUGS (1)
  1. CHANTIX [Suspect]
     Indication: SMOKING CESSATION THERAPY
     Dosage: 1MG TWICE DAILY
     Dates: start: 20071203, end: 20080115

REACTIONS (7)
  - ANXIETY [None]
  - DRUG EFFECT DECREASED [None]
  - IRRITABILITY [None]
  - MAJOR DEPRESSION [None]
  - SLEEP TERROR [None]
  - STRESS [None]
  - SUICIDAL IDEATION [None]
